FAERS Safety Report 5195385-5 (Version None)
Quarter: 2006Q4

REPORT INFORMATION
  Report Type: 
  Country: None (occurrence: None)
  Receive Date: 20061229
  Receipt Date: 20061219
  Transmission Date: 20070319
  Serious: Yes (Hospitalization)
  Sender: FDA-Public Use
  Company Number: FR-PFIZER INC-2006155452

PATIENT
  Age: 63 Year
  Sex: Male

DRUGS (11)
  1. LYRICA [Suspect]
     Route: 048
     Dates: start: 20060807, end: 20061106
  2. DANTRIUM [Suspect]
     Route: 048
     Dates: start: 20060801, end: 20061106
  3. DAFALGAN [Suspect]
     Route: 048
     Dates: start: 20060817, end: 20061106
  4. ZOCOR [Suspect]
     Route: 048
  5. FRAGMIN [Concomitant]
     Route: 058
  6. ATHYMIL [Concomitant]
  7. ASPIRIN [Concomitant]
  8. POLYETHYLENE GLYCOL [Concomitant]
  9. RIVOTRIL [Concomitant]
  10. OMIX [Concomitant]
     Dates: start: 20060925
  11. BACTRIM [Concomitant]
     Dates: start: 20060824, end: 20060831

REACTIONS (8)
  - ALANINE AMINOTRANSFERASE INCREASED [None]
  - ASPARTATE AMINOTRANSFERASE INCREASED [None]
  - ASTHENIA [None]
  - MALAISE [None]
  - NAUSEA [None]
  - NEUTROPENIA [None]
  - PYREXIA [None]
  - URINARY TRACT INFECTION [None]
